FAERS Safety Report 8035829-4 (Version None)
Quarter: 2012Q1

REPORT INFORMATION
  Report Type: 
  Country: None (occurrence: None)
  Receive Date: 20120111
  Receipt Date: 20120111
  Transmission Date: 20120608
  Serious: No
  Sender: FDA-Public Use
  Company Number: None

PATIENT
  Age: 78 Year
  Sex: Female
  Weight: 58.513 kg

DRUGS (2)
  1. METHYLPREDNISOLONE [Concomitant]
  2. LEVOFLOXACIN SUB FOR LEVAQUIN [Suspect]
     Indication: BRONCHITIS
     Dosage: 1 TABLET
     Route: 048
     Dates: start: 20111214, end: 20111216

REACTIONS (2)
  - GAIT DISTURBANCE [None]
  - TENDONITIS [None]
